FAERS Safety Report 5074425-8 (Version None)
Quarter: 2006Q3

REPORT INFORMATION
  Report Type: 
  Country: None (occurrence: None)
  Receive Date: 20060714
  Receipt Date: 20060323
  Transmission Date: 20061208
  Serious: No
  Sender: FDA-Public Use
  Company Number: 2006SP001358

PATIENT
  Age: 56 Year
  Sex: Male
  Weight: 136.0791 kg

DRUGS (8)
  1. LUNESTA [Suspect]
     Indication: INSOMNIA
     Dosage: 2 MG;HS;ORAL
     Route: 048
     Dates: start: 20060321
  2. GLUCOPHAGE [Concomitant]
  3. POTASSIUM [Concomitant]
  4. LASIX [Concomitant]
  5. COREG [Concomitant]
  6. CARDIZEM [Concomitant]
  7. VICODIN [Concomitant]
  8. LISINOPRIL [Concomitant]

REACTIONS (1)
  - INSOMNIA [None]
